FAERS Safety Report 8556488-8 (Version None)
Quarter: 2012Q3

REPORT INFORMATION
  Report Type: 
  Country: None (occurrence: None)
  Receive Date: 20120801
  Receipt Date: 20120730
  Transmission Date: 20120928
  Serious: Yes (Death, Hospitalization)
  Sender: FDA-Public Use
  Company Number: PHHY2012IQ065670

PATIENT
  Age: 53 Year
  Sex: Female

DRUGS (2)
  1. TASIGNA [Suspect]
     Dosage: 600 MG, DAILY
     Route: 048
     Dates: start: 20120401
  2. TASIGNA [Suspect]
     Indication: CHRONIC MYELOID LEUKAEMIA
     Dosage: 800 MG, PER DAY
     Route: 048
     Dates: start: 20110102, end: 20120401

REACTIONS (2)
  - HEADACHE [None]
  - CEREBRAL HAEMORRHAGE [None]
